FAERS Safety Report 11675580 (Version 2)
Quarter: 2016Q1

REPORT INFORMATION
  Report Type: Spontaneous
  Country: JP (occurrence: JP)
  Receive Date: 20151028
  Receipt Date: 20160211
  Transmission Date: 20160525
  Serious: Yes (Hospitalization)
  Sender: FDA-Public Use
  Company Number: JP-BRISTOL-MYERS SQUIBB COMPANY-BMS-2015-072026

PATIENT
  Age: 75 Year
  Sex: Male
  Weight: 60 kg

DRUGS (4)
  1. SUNVEPRA [Suspect]
     Active Substance: ASUNAPREVIR
     Dosage: 100 MG, BID
     Route: 048
     Dates: start: 20150511
  2. DAKLINZA [Suspect]
     Active Substance: DACLATASVIR
     Indication: CHRONIC HEPATITIS C
     Dosage: 60 MG, QD
     Route: 048
     Dates: start: 20150508
  3. SUNVEPRA [Suspect]
     Active Substance: ASUNAPREVIR
     Indication: CHRONIC HEPATITIS C
     Dosage: 100 MG, BID
     Route: 048
     Dates: start: 20150508
  4. DAKLINZA [Suspect]
     Active Substance: DACLATASVIR
     Dosage: 60 MG, QD
     Route: 048
     Dates: start: 20150511

REACTIONS (3)
  - Dry mouth [Recovering/Resolving]
  - Colitis [Recovering/Resolving]
  - Dry eye [Recovering/Resolving]

NARRATIVE: CASE EVENT DATE: 20150702
